FAERS Safety Report 4978342-0 (Version None)
Quarter: 2006Q2

REPORT INFORMATION
  Report Type: 
  Country: None (occurrence: None)
  Receive Date: 20060417
  Receipt Date: 20060411
  Transmission Date: 20061013
  Serious: Yes (Hospitalization)
  Sender: FDA-Public Use
  Company Number: DEWYE550712APR06

PATIENT
  Age: 64 Year
  Sex: Male

DRUGS (5)
  1. GEMTUZUMAB OZOGAMICIN (GEMTUZUMAB OZOGAMICIN, INJECTION) [Suspect]
     Indication: ACUTE MYELOID LEUKAEMIA
     Dosage: SEE IMAGE
     Dates: start: 20050215, end: 20050215
  2. GEMTUZUMAB OZOGAMICIN (GEMTUZUMAB OZOGAMICIN, INJECTION) [Suspect]
     Indication: ACUTE MYELOID LEUKAEMIA
     Dosage: SEE IMAGE
     Dates: start: 20050309, end: 20050309
  3. CYTARABINE [Suspect]
     Indication: ACUTE MYELOID LEUKAEMIA
     Dates: start: 20050409, end: 20050415
  4. ETOPOSIDE (ETOPOSIDE, , 0) [Suspect]
     Indication: ACUTE MYELOID LEUKAEMIA
     Dates: start: 20050409, end: 20050415
  5. NOVANTRON (MITOXANTRONE HYDROCHLORIDE, , 0) [Suspect]
     Indication: ACUTE MYELOID LEUKAEMIA
     Dates: start: 20050409, end: 20050415

REACTIONS (2)
  - FUNGAL INFECTION [None]
  - LUNG INFILTRATION [None]
